FAERS Safety Report 13070940 (Version 1)
Quarter: 2016Q4

REPORT INFORMATION
  Report Type: Report from Study
  Country: NL (occurrence: NL)
  Receive Date: 20161229
  Receipt Date: 20161229
  Transmission Date: 20170207
  Serious: Yes (Death)
  Sender: FDA-Public Use
  Company Number: PHHY2016NL179265

PATIENT
  Sex: Male

DRUGS (3)
  1. ZOMETA [Suspect]
     Active Substance: ZOLEDRONIC ACID
     Dosage: 4MG/100 ML ONCE EVERY 4 WEEKS
     Route: 042
     Dates: start: 20161219
  2. ZOMETA [Suspect]
     Active Substance: ZOLEDRONIC ACID
     Indication: RENAL CELL CARCINOMA
     Dosage: 4MG/100 ML ONCE EVERY 4 WEEKS
     Route: 042
  3. ZOMETA [Suspect]
     Active Substance: ZOLEDRONIC ACID
     Dosage: 4MG/100 ML ONCE EVERY 4 WEEKS
     Route: 042
     Dates: start: 20140730

REACTIONS (2)
  - Product use issue [Unknown]
  - Death [Fatal]
